FAERS Safety Report 21217283 (Version 2)
Quarter: 2022Q3

REPORT INFORMATION
  Report Type: Report from Study
  Country: FR (occurrence: FR)
  Receive Date: 20220816
  Receipt Date: 20220915
  Transmission Date: 20221026
  Serious: Yes (Life-Threatening)
  Sender: FDA-Public Use
  Company Number: FR-SUN PHARMACEUTICAL INDUSTRIES LTD-2022RR-347711

PATIENT
  Age: 78 Year
  Sex: Female

DRUGS (3)
  1. GEMCITABINE HYDROCHLORIDE [Suspect]
     Active Substance: GEMCITABINE HYDROCHLORIDE
     Indication: Breast cancer
     Dosage: ACCORDING TO A SCHEDULE OF DAY 1, DAY 8,RESUMED ON DAY 21
     Route: 065
     Dates: end: 201807
  2. CARBOPLATIN [Suspect]
     Active Substance: CARBOPLATIN
     Indication: Breast cancer
     Dosage: ACCORDING TO A SCHEDULE OF DAY 1, DAY 8,RESUMED ON DAY 21
     Route: 065
  3. PEMBROLIZUMAB [Suspect]
     Active Substance: PEMBROLIZUMAB
     Indication: Breast cancer
     Dosage: 200 MILLIGRAM, 1 DOSE/3 WEEKS
     Route: 042

REACTIONS (1)
  - Neutropenia [Unknown]
